APPROVED DRUG PRODUCT: LIOTHYRONINE SODIUM
Active Ingredient: LIOTHYRONINE SODIUM
Strength: EQ 0.05MG BASE
Dosage Form/Route: TABLET;ORAL
Application: A090097 | Product #003 | TE Code: AB
Applicant: DR REDDYS LABORATORIES SA
Approved: Mar 20, 2009 | RLD: No | RS: No | Type: RX